FAERS Safety Report 6446222-X (Version None)
Quarter: 2009Q4

REPORT INFORMATION
  Report Type: 
  Country: None (occurrence: None)
  Receive Date: 20091119
  Receipt Date: 20091109
  Transmission Date: 20100525
  Serious: Yes (Hospitalization)
  Sender: FDA-Public Use
  Company Number: UA-B.I. PHARMACEUTICALS,INC./RIDGEFIELD-2009-AP-00312AP

PATIENT
  Age: 46 Year
  Sex: Female

DRUGS (1)
  1. MOVALIS [Suspect]
     Indication: OSTEOCHONDROSIS
     Dosage: 1.5 ML
     Route: 030
     Dates: start: 20080507

REACTIONS (3)
  - ASTHENIA [None]
  - COUGH [None]
  - DYSPNOEA [None]
